FAERS Safety Report 8075622-X (Version None)
Quarter: 2012Q1

REPORT INFORMATION
  Report Type: 
  Country: None (occurrence: None)
  Receive Date: 20120127
  Receipt Date: 20110725
  Transmission Date: 20120608
  Serious: No
  Sender: FDA-Public Use
  Company Number: US-GLAXOSMITHKLINE-A0938926A

PATIENT
  Sex: Male

DRUGS (1)
  1. MEPRON [Suspect]
     Indication: PROPHYLAXIS
     Dosage: 1TSP TWICE PER DAY
     Route: 048

REACTIONS (2)
  - PRODUCT QUALITY ISSUE [None]
  - DIARRHOEA [None]
